FAERS Safety Report 16096412 (Version 1)
Quarter: 2019Q1

REPORT INFORMATION
  Report Type: Spontaneous
  Country: PL (occurrence: PL)
  Receive Date: 20190320
  Receipt Date: 20190320
  Transmission Date: 20190418
  Serious: Yes (Hospitalization, Other)
  Sender: FDA-Public Use
  Company Number: PL-ACTELION-A-CH2019-187743

PATIENT
  Age: 24 Year
  Sex: Female

DRUGS (5)
  1. EPOPROSTENOL SODIUM. [Suspect]
     Active Substance: EPOPROSTENOL SODIUM
     Dosage: 40 NG/KG, PER MIN
     Route: 042
  2. OPSUMIT [Suspect]
     Active Substance: MACITENTAN
     Indication: PULMONARY ARTERIAL HYPERTENSION
     Route: 048
  3. BOSENTAN. [Suspect]
     Active Substance: BOSENTAN
     Indication: PULMONARY ARTERIAL HYPERTENSION
     Dosage: 125 MG, BID
     Route: 048
  4. SILDENAFIL. [Concomitant]
     Active Substance: SILDENAFIL
     Indication: PULMONARY ARTERIAL HYPERTENSION
     Dosage: 20 MG, TID
  5. EPOPROSTENOL SODIUM. [Suspect]
     Active Substance: EPOPROSTENOL SODIUM
     Indication: PULMONARY ARTERIAL HYPERTENSION
     Dosage: 28 NG/KG, PER MIN
     Route: 042

REACTIONS (9)
  - Menstrual disorder [Unknown]
  - Dyspnoea [Unknown]
  - N-terminal prohormone brain natriuretic peptide increased [Unknown]
  - Pneumonia [Unknown]
  - Pulmonary embolism [Unknown]
  - General physical health deterioration [Unknown]
  - Supraventricular extrasystoles [Unknown]
  - Dermatitis [Unknown]
  - Pleural effusion [Unknown]

NARRATIVE: CASE EVENT DATE: 2017
